FAERS Safety Report 20618758 (Version 1)
Quarter: 2022Q1

REPORT INFORMATION
  Report Type: Spontaneous
  Country: US (occurrence: US)
  Receive Date: 20220322
  Receipt Date: 20220322
  Transmission Date: 20220423
  Serious: No
  Sender: FDA-Public Use
  Company Number: US-ELI_LILLY_AND_COMPANY-US202203005007

PATIENT

DRUGS (2)
  1. RETEVMO [Suspect]
     Active Substance: SELPERCATINIB
     Indication: Non-small cell lung cancer
     Dosage: 120 MG, BID, ONE 40MG AND ONE 80MG PILL
     Route: 048
     Dates: start: 20220221
  2. RETEVMO [Suspect]
     Active Substance: SELPERCATINIB
     Dosage: 40 MG, BID
     Route: 048

REACTIONS (4)
  - Arthritis [Not Recovered/Not Resolved]
  - Back disorder [Not Recovered/Not Resolved]
  - Asthenia [Not Recovered/Not Resolved]
  - Apathy [Not Recovered/Not Resolved]
